FAERS Safety Report 10926620 (Version 1)
Quarter: 2015Q1

REPORT INFORMATION
  Report Type: Spontaneous
  Country: US (occurrence: None)
  Receive Date: 20150316
  Receipt Date: 20150316
  Transmission Date: 20150721
  Serious: Yes (Death)
  Sender: FDA-Public Use
  Company Number: BTG00209

PATIENT

DRUGS (1)
  1. VORAXAZE [Suspect]
     Active Substance: GLUCARPIDASE
     Indication: PRODUCT USED FOR UNKNOWN INDICATION
     Dates: start: 20150224

REACTIONS (1)
  - Death [None]
